FAERS Safety Report 8377124-X (Version None)
Quarter: 2012Q2

REPORT INFORMATION
  Report Type: 
  Country: None (occurrence: None)
  Receive Date: 20120522
  Receipt Date: 20120508
  Transmission Date: 20120825
  Serious: Yes (Hospitalization)
  Sender: FDA-Public Use
  Company Number: CH-ROCHE-1067180

PATIENT
  Age: 35 Year
  Sex: Female
  Weight: 43.5 kg

DRUGS (7)
  1. MADOPAR [Concomitant]
     Route: 048
  2. CELLCEPT [Suspect]
     Indication: PRODUCT USED FOR UNKNOWN INDICATION
     Route: 048
     Dates: start: 20111101
  3. BACTRIM [Concomitant]
     Route: 048
  4. DIFLUCAN [Suspect]
     Indication: PRODUCT USED FOR UNKNOWN INDICATION
     Route: 048
     Dates: start: 20120105, end: 20120119
  5. PROGRAF [Suspect]
     Route: 048
  6. PROGRAF [Suspect]
     Indication: PRODUCT USED FOR UNKNOWN INDICATION
     Route: 048
     Dates: start: 20111101
  7. PANTOPRAZOLE [Concomitant]
     Route: 048

REACTIONS (2)
  - RENAL TUBULAR DISORDER [None]
  - THROMBOTIC MICROANGIOPATHY [None]
